FAERS Safety Report 7486312-6 (Version None)
Quarter: 2011Q2

REPORT INFORMATION
  Report Type: 
  Country: None (occurrence: None)
  Receive Date: 20110517
  Receipt Date: 20110503
  Transmission Date: 20111010
  Serious: Yes (Hospitalization)
  Sender: FDA-Public Use
  Company Number: US-UCBSA-032184

PATIENT
  Sex: Male
  Weight: 93.8 kg

DRUGS (21)
  1. TOPAMAX [Concomitant]
     Dates: start: 20110113, end: 20110119
  2. VITAMIN B [Concomitant]
     Indication: VITAMIN SUPPLEMENTATION
     Dates: start: 20090101
  3. VITAMIN B [Concomitant]
     Dates: start: 20090101
  4. TOPAMAX [Concomitant]
     Dosage: 100 MG IN AM AND 75 MG IN PM
     Dates: start: 20110217, end: 20110223
  5. VITAMIN C WITH ROSE HIPS [Concomitant]
     Indication: VITAMIN SUPPLEMENTATION
     Dates: start: 20090101
  6. TOPAMAX [Concomitant]
     Dates: start: 20110120, end: 20110126
  7. TOPAMAX [Concomitant]
     Dates: start: 20110210, end: 20110216
  8. TOPAMAX [Concomitant]
     Dates: start: 20110401
  9. CALCIUM [Concomitant]
     Indication: MINERAL SUPPLEMENTATION
     Dates: start: 20090101
  10. TOPAMAX [Concomitant]
     Dosage: Q AM
     Dates: start: 20110203, end: 20110209
  11. TOPAMAX [Concomitant]
     Dosage: Q AM
     Dates: start: 20110203, end: 20110209
  12. TOPAMAX [Concomitant]
     Dates: start: 20110224, end: 20110318
  13. ASIAN GINSENG [Concomitant]
     Indication: MEDICAL DIET
     Dates: start: 20090101
  14. IBUPROFEN [Concomitant]
     Indication: HEADACHE
     Dates: start: 20070101
  15. TOPAMAX [Concomitant]
     Dosage: Q AM
     Dates: start: 20110106, end: 20110112
  16. TOPAMAX [Concomitant]
     Dates: start: 20110120, end: 20110126
  17. TOPAMAX [Concomitant]
     Dates: start: 20110127, end: 20110202
  18. LACOSAMIDE [Suspect]
     Route: 048
     Dates: start: 20091207
  19. VITAMIN E [Concomitant]
  20. MULTI-VITAMIN [Concomitant]
     Indication: VITAMIN SUPPLEMENTATION
     Dosage: 1 TAB
     Dates: start: 20090101
  21. FISH OIL [Concomitant]
     Indication: MEDICAL DIET
     Dates: start: 20090101

REACTIONS (1)
  - DELIRIUM [None]
